FAERS Safety Report 7378257-7 (Version None)
Quarter: 2011Q1

REPORT INFORMATION
  Report Type: 
  Country: None (occurrence: None)
  Receive Date: 20110328
  Receipt Date: 20110317
  Transmission Date: 20110831
  Serious: Yes (Other)
  Sender: FDA-Public Use
  Company Number: B0708564A

PATIENT
  Age: 21 Year
  Sex: Female

DRUGS (4)
  1. LAMIVUDINE [Suspect]
     Indication: HIV INFECTION
  2. EFAVIRENZ [Suspect]
     Indication: HIV INFECTION
  3. ZIDOVUDINE [Suspect]
     Indication: HIV INFECTION
     Route: 065
  4. TENOFOVIR DISOPROXIL FUMARATE [Suspect]
     Indication: HIV INFECTION

REACTIONS (8)
  - DYSARTHRIA [None]
  - LYMPHADENOPATHY [None]
  - ASTHENIA [None]
  - FATIGUE [None]
  - EYELID PTOSIS [None]
  - CD4 LYMPHOCYTES INCREASED [None]
  - MYASTHENIA GRAVIS [None]
  - DIPLOPIA [None]
